FAERS Safety Report 19753675 (Version 1)
Quarter: 2021Q3

REPORT INFORMATION
  Report Type: Report from Study
  Country: None (occurrence: IL)
  Receive Date: 20210826
  Receipt Date: 20210826
  Transmission Date: 20211014
  Serious: Yes (Other)
  Sender: FDA-Public Use
  Company Number: IL-ABBVIE-21K-082-4054569-00

PATIENT
  Age: 77 Year
  Sex: Male
  Weight: 112 kg

DRUGS (27)
  1. VENETOCLAX. [Suspect]
     Active Substance: VENETOCLAX
     Indication: ACUTE MYELOID LEUKAEMIA
     Route: 048
     Dates: start: 20210322, end: 20210323
  2. VENETOCLAX. [Suspect]
     Active Substance: VENETOCLAX
     Route: 048
     Dates: start: 20210603, end: 20210709
  3. ALLORIL [Concomitant]
     Active Substance: ALLOPURINOL
     Indication: PROPHYLAXIS
     Dates: start: 20210316, end: 20210316
  4. AZACITIDINE. [Suspect]
     Active Substance: AZACITIDINE
     Dosage: CYCLE 2
     Route: 058
     Dates: start: 20210502, end: 20210506
  5. AZACITIDINE. [Suspect]
     Active Substance: AZACITIDINE
     Dosage: CYCLE 4
     Route: 058
     Dates: start: 20210630, end: 20210701
  6. TRITACE [Concomitant]
     Active Substance: RAMIPRIL
     Indication: HYPERTENSION
  7. XATRAL [Concomitant]
     Active Substance: ALFUZOSIN
     Indication: HYPERTENSION
  8. CARTIA [Concomitant]
     Indication: HYPERTENSION
     Dates: end: 20210616
  9. VENETOCLAX. [Suspect]
     Active Substance: VENETOCLAX
     Route: 048
     Dates: start: 20210401, end: 20210401
  10. AZACITIDINE. [Suspect]
     Active Substance: AZACITIDINE
     Route: 058
     Dates: start: 20210428, end: 20210429
  11. AZACITIDINE. [Suspect]
     Active Substance: AZACITIDINE
     Dosage: CYCLE 3
     Route: 058
     Dates: start: 20210530, end: 20210602
  12. DEGLUDEC [Concomitant]
     Indication: DIABETES MELLITUS
  13. AZACITIDINE. [Suspect]
     Active Substance: AZACITIDINE
     Dosage: CYCLE 1
     Route: 058
     Dates: start: 20210404, end: 20210408
  14. LAXADIN [Concomitant]
     Active Substance: BISACODYL
     Indication: CONSTIPATION
  15. NORMALAX [Concomitant]
     Indication: CONSTIPATION
  16. VENETOCLAX. [Suspect]
     Active Substance: VENETOCLAX
     Route: 048
     Dates: start: 20210331, end: 20210331
  17. VENETOCLAX. [Suspect]
     Active Substance: VENETOCLAX
     Route: 048
     Dates: start: 20210402, end: 20210608
  18. AZACITIDINE. [Suspect]
     Active Substance: AZACITIDINE
     Dosage: CYCLE 1
     Route: 058
     Dates: start: 20210331, end: 20210401
  19. LYRICA [Concomitant]
     Active Substance: PREGABALIN
     Indication: NEURALGIA
  20. BETMIGA [Concomitant]
     Active Substance: MIRABEGRON
     Indication: BLADDER DISORDER
  21. VENETOCLAX. [Suspect]
     Active Substance: VENETOCLAX
     Route: 048
     Dates: start: 20210610, end: 20210615
  22. AZACITIDINE. [Suspect]
     Active Substance: AZACITIDINE
     Dosage: CYCLE 3
     Route: 058
     Dates: start: 20210526, end: 20210527
  23. OXOPURIN [Concomitant]
     Indication: NEURALGIA
  24. BONDORMIN [Concomitant]
     Active Substance: BROTIZOLAM
     Indication: INSOMNIA
  25. GLUCOPHAGE [Concomitant]
     Active Substance: METFORMIN HYDROCHLORIDE
     Indication: DIABETES MELLITUS
  26. AZACITIDINE. [Suspect]
     Active Substance: AZACITIDINE
     Indication: ACUTE MYELOID LEUKAEMIA
     Dosage: CYCLE 1
     Route: 058
     Dates: start: 20210322, end: 20210323
  27. AZACITIDINE. [Suspect]
     Active Substance: AZACITIDINE
     Dosage: CYCLE 4
     Route: 058
     Dates: start: 20210704, end: 20210707

REACTIONS (8)
  - Cough [Recovered/Resolved]
  - Neutropenia [Not Recovered/Not Resolved]
  - Pain in extremity [Not Recovered/Not Resolved]
  - Diabetic neuropathy [Not Recovered/Not Resolved]
  - Asthenia [Recovered/Resolved]
  - Paraesthesia [Recovered/Resolved]
  - Pancytopenia [Not Recovered/Not Resolved]
  - Blood alkaline phosphatase increased [Not Recovered/Not Resolved]

NARRATIVE: CASE EVENT DATE: 20210330
